FAERS Safety Report 24412381 (Version 1)
Quarter: 2024Q4

REPORT INFORMATION
  Report Type: Spontaneous
  Country: US (occurrence: US)
  Receive Date: 20241008
  Receipt Date: 20241008
  Transmission Date: 20250115
  Serious: No
  Sender: PFIZER
  Company Number: US-PFIZER INC-PV202400129736

PATIENT
  Age: 40 Year
  Sex: Female

DRUGS (1)
  1. SONATA [Suspect]
     Active Substance: ZALEPLON
     Indication: Sleep disorder therapy

REACTIONS (2)
  - Throat irritation [Unknown]
  - Ear pruritus [Unknown]
